FAERS Safety Report 9740660 (Version 1)
Quarter: 2013Q4

REPORT INFORMATION
  Report Type: Spontaneous
  Country: US (occurrence: US)
  Receive Date: 20131209
  Receipt Date: 20131209
  Transmission Date: 20140711
  Serious: No
  Sender: FDA-Public Use
  Company Number: US-BIOGENIDEC-2013BI093098

PATIENT
  Sex: Male

DRUGS (13)
  1. TECFIDERA [Suspect]
     Indication: MULTIPLE SCLEROSIS
     Route: 048
     Dates: start: 20130621, end: 20130628
  2. TECFIDERA [Suspect]
     Indication: MULTIPLE SCLEROSIS
     Route: 048
     Dates: start: 20130628, end: 20130704
  3. TECFIDERA [Suspect]
     Indication: MULTIPLE SCLEROSIS
     Route: 048
     Dates: start: 20130629
  4. TECFIDERA [Suspect]
     Indication: MULTIPLE SCLEROSIS
     Route: 048
     Dates: start: 20130705
  5. CALCIUM AND VIT D [Concomitant]
  6. DICLOFENAC [Concomitant]
  7. FAMOTIDINE [Concomitant]
  8. DOCUSATE SODIUM [Concomitant]
  9. GABAPENTIN [Concomitant]
  10. IPRATROPIUM-ALBUTEROL [Concomitant]
  11. PAXIL [Concomitant]
  12. BOOST PLUS [Concomitant]
     Route: 048
  13. SPIRIVA [Concomitant]

REACTIONS (2)
  - Dry mouth [Not Recovered/Not Resolved]
  - Dysgeusia [Not Recovered/Not Resolved]
